FAERS Safety Report 23291367 (Version 2)
Quarter: 2024Q2

REPORT INFORMATION
  Report Type: Spontaneous
  Country: US (occurrence: US)
  Receive Date: 20231213
  Receipt Date: 20240415
  Transmission Date: 20240716
  Serious: No
  Sender: FDA-Public Use
  Company Number: US-BECTON DICKINSON-US-BD-23-000431

PATIENT

DRUGS (1)
  1. CHLORAPREP [Suspect]
     Active Substance: CHLORHEXIDINE GLUCONATE\ISOPROPYL ALCOHOL
     Indication: Infection prophylaxis
     Dosage: UNK
     Route: 065

REACTIONS (1)
  - Device breakage [Unknown]

NARRATIVE: CASE EVENT DATE: 20231118
